FAERS Safety Report 22237241 (Version 1)
Quarter: 2023Q2

REPORT INFORMATION
  Report Type: Spontaneous
  Country: US (occurrence: None)
  Receive Date: 20230421
  Receipt Date: 20230421
  Transmission Date: 20230722
  Serious: No
  Sender: FDA-Public Use
  Company Number: US-ROCHE-3205050

PATIENT
  Sex: Female

DRUGS (17)
  1. ESBRIET [Suspect]
     Active Substance: PIRFENIDONE
     Indication: Idiopathic pulmonary fibrosis
     Dosage: TAKE 1 CAPSULE 3 TIMES  DAILY FOR 1 WEEK THE TAKE 2 CAPSULES 3 TIMES DAILY FOR 1 WEEK AND THEN 3 CAP
     Route: 048
     Dates: start: 20220914
  2. ELIQUIS [Concomitant]
     Active Substance: APIXABAN
  3. LEVEMIR [Concomitant]
     Active Substance: INSULIN DETEMIR
  4. PREGABALIN [Concomitant]
     Active Substance: PREGABALIN
  5. ALBUTEROL SULFATE [Concomitant]
     Active Substance: ALBUTEROL SULFATE
  6. BUDESONIDE [Concomitant]
     Active Substance: BUDESONIDE
  7. CARVEDILOL [Concomitant]
     Active Substance: CARVEDILOL
  8. CLONIDINE HYDROCHLORIDE [Concomitant]
     Active Substance: CLONIDINE HYDROCHLORIDE
  9. ELDERBERRY;ZINC [Concomitant]
  10. FOLIC ACID [Concomitant]
     Active Substance: FOLIC ACID
  11. GLIMEPIRIDE [Concomitant]
     Active Substance: GLIMEPIRIDE
  12. IPRATROPIUM [Concomitant]
     Active Substance: IPRATROPIUM
  13. JANUVIA [Concomitant]
     Active Substance: SITAGLIPTIN PHOSPHATE
  14. LEVOTHYROXINE [Concomitant]
     Active Substance: LEVOTHYROXINE
  15. PRAVASTATIN [Concomitant]
     Active Substance: PRAVASTATIN
  16. VITAMIN C [Concomitant]
     Active Substance: ASCORBIC ACID
  17. ERGOCALCIFEROL [Concomitant]
     Active Substance: ERGOCALCIFEROL

REACTIONS (1)
  - Pain [Not Recovered/Not Resolved]
